FAERS Safety Report 5849603-8 (Version None)
Quarter: 2008Q3

REPORT INFORMATION
  Report Type: 
  Country: None (occurrence: None)
  Receive Date: 20080815
  Receipt Date: 20080806
  Transmission Date: 20090109
  Serious: Yes (Life-Threatening, Hospitalization, Other)
  Sender: FDA-Public Use
  Company Number: OMPQ-NO-0806S-0391

PATIENT
  Age: 63 Year
  Sex: Male

DRUGS (9)
  1. OMNIPAQUE 140 [Suspect]
     Indication: ANGINA PECTORIS
     Dosage: SINGLE DOSE, INTRACARDIAC
     Route: 016
     Dates: start: 20080502, end: 20080502
  2. PIPERACILLIN SODIUM           (PENTCILLIN) [Concomitant]
  3. CARVEDILOL    (ARTIST) [Concomitant]
  4. RABEPRAZOLE SODIUM     (PARIET) [Concomitant]
  5. ACETYLSALICYLIC ACID (BAYASPIRIN) [Concomitant]
  6. CARBOCISTEINE       (MUCODYNE) [Concomitant]
  7. SEVELAMER HYDROCHLORIDE      (RENAGEL) [Concomitant]
  8. ZOLPIDEM [Concomitant]
  9. WARFARIN SODIUM [Concomitant]

REACTIONS (8)
  - BLISTER [None]
  - CONJUNCTIVAL HYPERAEMIA [None]
  - CYTOMEGALOVIRUS INFECTION [None]
  - EPSTEIN-BARR VIRUS INFECTION [None]
  - HERPES ZOSTER [None]
  - PYREXIA [None]
  - STEVENS-JOHNSON SYNDROME [None]
  - THIRST [None]
